FAERS Safety Report 10622009 (Version 2)
Quarter: 2014Q4

REPORT INFORMATION
  Report Type: Spontaneous
  Country: US (occurrence: US)
  Receive Date: 20141203
  Receipt Date: 20141209
  Transmission Date: 20150529
  Serious: Yes (Other)
  Sender: FDA-Public Use
  Company Number: US-ASTELLAS-2014US018941

PATIENT
  Sex: Male

DRUGS (1)
  1. TARCEVA [Suspect]
     Active Substance: ERLOTINIB HYDROCHLORIDE
     Indication: PRODUCT USED FOR UNKNOWN INDICATION
     Dosage: UNK, UNKNOWN FREQ.
     Route: 065

REACTIONS (8)
  - Muscle spasms [Unknown]
  - Hypoaesthesia [Unknown]
  - Acne [Unknown]
  - Neuralgia [Unknown]
  - Paralysis [Unknown]
  - Asthenia [Unknown]
  - Asthenia [Not Recovered/Not Resolved]
  - Monoplegia [Not Recovered/Not Resolved]
